FAERS Safety Report 19770117 (Version 3)
Quarter: 2021Q4

REPORT INFORMATION
  Report Type: Report from Study
  Country: BR (occurrence: BR)
  Receive Date: 20210831
  Receipt Date: 20211126
  Transmission Date: 20220304
  Serious: Yes (Death, Hospitalization)
  Sender: FDA-Public Use
  Company Number: BR-ABBVIE-21K-020-4059043-00

PATIENT
  Sex: Female
  Weight: 60 kg

DRUGS (4)
  1. RINVOQ [Suspect]
     Active Substance: UPADACITINIB
     Indication: Rheumatoid arthritis
     Route: 048
     Dates: start: 20210714, end: 2021
  2. CITALOPRAM [Concomitant]
     Active Substance: CITALOPRAM HYDROBROMIDE
     Indication: Anxiety
     Dosage: UNSPECIFIC DOSE
  3. CITALOPRAM [Concomitant]
     Active Substance: CITALOPRAM HYDROBROMIDE
     Indication: Panic disorder
  4. AMPAVIT [Concomitant]
     Indication: Anaemia
     Dosage: UNSPECIFIC DOSE

REACTIONS (6)
  - COVID-19 [Not Recovered/Not Resolved]
  - Oxygen saturation decreased [Unknown]
  - Cardiomegaly [Unknown]
  - Lung disorder [Unknown]
  - Heart alternation [Unknown]
  - Thrombosis [Fatal]

NARRATIVE: CASE EVENT DATE: 20210101
